FAERS Safety Report 22017212 (Version 4)
Quarter: 2023Q2

REPORT INFORMATION
  Report Type: Spontaneous
  Country: US (occurrence: US)
  Receive Date: 20230221
  Receipt Date: 20230509
  Transmission Date: 20230721
  Serious: No
  Sender: FDA-Public Use
  Company Number: US-009507513-2302USA004038

PATIENT
  Age: 78 Year
  Sex: Male
  Weight: 74 kg

DRUGS (3)
  1. ZERBAXA [Suspect]
     Active Substance: CEFTOLOZANE SULFATE\TAZOBACTAM SODIUM
     Indication: Pseudomonas infection
     Dosage: 150 MILLIGRAM, Q8H
     Dates: start: 20230210
  2. CUBICIN [Concomitant]
     Active Substance: DAPTOMYCIN
  3. TOBRAMYCIN [Concomitant]
     Active Substance: TOBRAMYCIN

REACTIONS (1)
  - Off label use [Unknown]

NARRATIVE: CASE EVENT DATE: 20230210
